FAERS Safety Report 7647809-9 (Version None)
Quarter: 2011Q3

REPORT INFORMATION
  Report Type: 
  Country: None (occurrence: None)
  Receive Date: 20110801
  Receipt Date: 20110726
  Transmission Date: 20111222
  Serious: Yes (Hospitalization, Other)
  Sender: FDA-Public Use
  Company Number: US-MERCK-1107USA01354

PATIENT

DRUGS (1)
  1. JANUMET [Suspect]
     Route: 048
     Dates: start: 20101025, end: 20110314

REACTIONS (2)
  - CHEST PAIN [None]
  - PANCREATIC CARCINOMA [None]
